FAERS Safety Report 23125012 (Version 1)
Quarter: 2023Q4

REPORT INFORMATION
  Report Type: Spontaneous
  Country: CN (occurrence: CN)
  Receive Date: 20231030
  Receipt Date: 20231030
  Transmission Date: 20240110
  Serious: Yes (Other)
  Sender: FDA-Public Use
  Company Number: CN-BAYER-2023A152120

PATIENT
  Sex: Female

DRUGS (1)
  1. AVELOX [Suspect]
     Active Substance: MOXIFLOXACIN HYDROCHLORIDE
     Dosage: UNK
     Route: 048
     Dates: start: 20231019

REACTIONS (14)
  - Hypoglycaemia [Recovering/Resolving]
  - Palpitations [None]
  - Nausea [None]
  - Vomiting [None]
  - Defaecation urgency [Recovered/Resolved]
  - Hyperhidrosis [None]
  - Asthenia [None]
  - Somnolence [None]
  - Fatigue [None]
  - Chest discomfort [None]
  - Abdominal pain [None]
  - Diarrhoea [None]
  - Emotional distress [None]
  - Flatulence [None]

NARRATIVE: CASE EVENT DATE: 20231001
